FAERS Safety Report 10027427 (Version 1)
Quarter: 2014Q1

REPORT INFORMATION
  Report Type: Spontaneous
  Country: GB (occurrence: None)
  Receive Date: 20140318
  Receipt Date: 20140318
  Transmission Date: 20141002
  Serious: Yes (Life-Threatening)
  Sender: FDA-Public Use
  Company Number: SYM-2014-18411

PATIENT
  Age: 72 Year
  Sex: Male

DRUGS (4)
  1. METRONIDAZOLE (METRONIDAZOLE) (METRONIDAZOLE) [Suspect]
     Indication: GASTROINTESTINAL SURGERY
     Dosage: NOT OTHERWISE SPECIFED
     Route: 042
     Dates: start: 20140205
  2. ONDANSETRON [Suspect]
     Indication: GASTROINTESTINAL SURGERY
     Dosage: NOT OTHERWISE SPECIFIED
     Route: 042
     Dates: start: 20140205
  3. GENTAMICIN [Suspect]
     Indication: GASTROINTESTINAL SURGERY
     Dosage: NOT OTHERWISE SPECIFIED
     Route: 042
     Dates: start: 20140205
  4. AMOXICILLIN [Suspect]
     Indication: GASTROINTESTINAL SURGERY
     Dosage: NOT OTHERWISE SPECIFIED
     Route: 042
     Dates: start: 20140205

REACTIONS (1)
  - Anaphylactic shock [None]
